FAERS Safety Report 20720121 (Version 1)
Quarter: 2022Q2

REPORT INFORMATION
  Report Type: Spontaneous
  Country: NO (occurrence: NO)
  Receive Date: 20220418
  Receipt Date: 20220418
  Transmission Date: 20220721
  Serious: Yes (Other)
  Sender: FDA-Public Use
  Company Number: NO-PFIZER INC-202200524452

PATIENT
  Age: 6 Decade
  Sex: Female

DRUGS (2)
  1. XALKORI [Suspect]
     Active Substance: CRIZOTINIB
     Indication: Non-small cell lung cancer
     Dosage: UNK
     Dates: start: 201601, end: 201605
  2. XALKORI [Suspect]
     Active Substance: CRIZOTINIB
     Dosage: GRADUAL INCREASE TO FULL DOSE IN AUG2016
     Dates: start: 201606, end: 201710

REACTIONS (5)
  - Carcinoembryonic antigen increased [Unknown]
  - Neoplasm progression [Unknown]
  - Constipation [Unknown]
  - Alanine aminotransferase increased [Unknown]
  - Weight decreased [Unknown]

NARRATIVE: CASE EVENT DATE: 20160201
